FAERS Safety Report 25078931 (Version 1)
Quarter: 2025Q1

REPORT INFORMATION
  Report Type: Spontaneous
  Country: US (occurrence: US)
  Receive Date: 20250314
  Receipt Date: 20250314
  Transmission Date: 20250409
  Serious: No
  Sender: ITALFARMACO SPA
  Company Number: US-ITALFARMACO SPA-2172849

PATIENT
  Age: 18 Year
  Sex: Male
  Weight: 70.76 kg

DRUGS (18)
  1. DUVYZAT [Suspect]
     Active Substance: GIVINOSTAT
     Indication: Muscular dystrophy
     Dates: start: 20241111
  2. BUSPIRONE HCL [Concomitant]
     Active Substance: BUSPIRONE HYDROCHLORIDE
  3. VITAMIN E [Concomitant]
     Active Substance: .ALPHA.-TOCOPHEROL
  4. CALCIUM [Concomitant]
     Active Substance: CALCIUM
  5. VITAMIN D [Concomitant]
     Active Substance: VITAMIN D NOS
  6. TRAMADOL HCL [Concomitant]
     Active Substance: TRAMADOL HYDROCHLORIDE
  7. TURMERIC COMPLEX [Concomitant]
  8. OS CAL ULTRA [Concomitant]
  9. OMEPRAZOLE [Concomitant]
     Active Substance: OMEPRAZOLE
  10. METHOCARBAMOL [Concomitant]
     Active Substance: METHOCARBAMOL
  11. METFORMIN HYDROCHLORIDE [Concomitant]
     Active Substance: METFORMIN HYDROCHLORIDE
  12. IBUPROFEN [Concomitant]
     Active Substance: IBUPROFEN
  13. GABAPENTIN [Concomitant]
     Active Substance: GABAPENTIN
  14. FLUOXETINE HYDROCHLORIDE [Concomitant]
     Active Substance: FLUOXETINE HYDROCHLORIDE
  15. EPLERENONE [Concomitant]
     Active Substance: EPLERENONE
  16. ENALAPRIL MALEATE [Concomitant]
     Active Substance: ENALAPRIL MALEATE
  17. DEFLAZACORT [Concomitant]
     Active Substance: DEFLAZACORT
  18. CYANOCOBALAMIN [Concomitant]
     Active Substance: CYANOCOBALAMIN

REACTIONS (1)
  - Platelet count decreased [Not Recovered/Not Resolved]
